FAERS Safety Report 10451157 (Version 2)
Quarter: 2015Q1

REPORT INFORMATION
  Report Type: Spontaneous
  Country: JP (occurrence: JP)
  Receive Date: 20140912
  Receipt Date: 20150119
  Transmission Date: 20150720
  Serious: Yes (Death)
  Sender: FDA-Public Use
  Company Number: JP-MALLINCKRODT-T201403443

PATIENT
  Age: 26 Year
  Sex: Male
  Weight: 68 kg

DRUGS (14)
  1. METHADONE [Suspect]
     Active Substance: METHADONE HYDROCHLORIDE
     Dosage: 25 MG, (75 MG DAILY DOSE)
     Route: 048
     Dates: start: 20140219, end: 20140303
  2. LOXONIN [Concomitant]
     Active Substance: LOXOPROFEN SODIUM
     Dosage: 60 MG, UNK
     Route: 048
     Dates: start: 20131223, end: 20131224
  3. MAGMITT [Concomitant]
     Active Substance: MAGNESIUM OXIDE
     Dosage: 990 MG, UNK
     Route: 048
     Dates: end: 20140320
  4. NOVAMIN [Concomitant]
     Active Substance: PROCHLORPERAZINE MALEATE
     Dosage: 15 MG, UNK
     Route: 048
     Dates: end: 20140320
  5. NAIXAN [Concomitant]
     Active Substance: NAPROXEN SODIUM
     Dosage: 400 MG, UNK
     Route: 048
     Dates: end: 20140324
  6. EURODIN [Concomitant]
     Active Substance: ESTAZOLAM
     Dosage: 2 MG, UNK
     Route: 048
     Dates: end: 20140227
  7. METHADONE [Suspect]
     Active Substance: METHADONE HYDROCHLORIDE
     Dosage: 20 MG, (60 MG DAILY DOSE)
     Route: 048
     Dates: start: 20140129, end: 20140218
  8. TAKEPRON [Concomitant]
     Active Substance: LANSOPRAZOLE
     Dosage: 15 MG, UNK
     Route: 048
     Dates: end: 20140320
  9. METHADONE [Suspect]
     Active Substance: METHADONE HYDROCHLORIDE
     Dosage: 20 MG, (60 MG DAILY DOSE)
     Route: 048
     Dates: start: 20131227, end: 20140114
  10. RINDERON V [Concomitant]
     Active Substance: BETAMETHASONE VALERATE
     Dosage: 2 MG, UNK
     Route: 048
     Dates: end: 20140324
  11. METHADONE [Suspect]
     Active Substance: METHADONE HYDROCHLORIDE
     Dosage: 25 MG, (75 MG DAILY DOSE)
     Route: 048
     Dates: start: 20140114, end: 20140128
  12. METHADONE [Suspect]
     Active Substance: METHADONE HYDROCHLORIDE
     Dosage: 30 MG, (90 MG DAILY DOSE)
     Route: 048
     Dates: start: 20140304, end: 20140322
  13. GABAPEN [Concomitant]
     Active Substance: GABAPENTIN
     Dosage: 1200 MG, UNK
     Route: 048
     Dates: end: 20140319
  14. METHADONE [Suspect]
     Active Substance: METHADONE HYDROCHLORIDE
     Indication: CANCER PAIN
     Dosage: 15 MG, (45 MG DAILY DOSE)
     Route: 048
     Dates: start: 20131224, end: 20131226

REACTIONS (2)
  - Tongue neoplasm malignant stage unspecified [Fatal]
  - Somnolence [Recovering/Resolving]

NARRATIVE: CASE EVENT DATE: 20140128
